FAERS Safety Report 24849863 (Version 1)
Quarter: 2025Q1

REPORT INFORMATION
  Report Type: Spontaneous
  Country: CN (occurrence: CN)
  Receive Date: 20250116
  Receipt Date: 20250116
  Transmission Date: 20250408
  Serious: Yes (Hospitalization)
  Sender: PFIZER
  Company Number: CN-PFIZER INC-PV202500005956

PATIENT
  Age: 83 Year
  Sex: Male
  Weight: 70 kg

DRUGS (2)
  1. TIGECYCLINE [Suspect]
     Active Substance: TIGECYCLINE
     Indication: Pneumonia acinetobacter
     Dosage: 50 MG, 2X/DAY
     Route: 041
     Dates: start: 20241231, end: 20250108
  2. ENOXAPARIN SODIUM [Concomitant]
     Active Substance: ENOXAPARIN SODIUM
     Indication: Deep vein thrombosis
     Dosage: 2000 IU, 1X/DAY
     Route: 058
     Dates: start: 20241230, end: 20250109

REACTIONS (5)
  - Platelet count decreased [Recovering/Resolving]
  - Coagulopathy [Recovering/Resolving]
  - Blood fibrinogen decreased [Recovering/Resolving]
  - Incision site haemorrhage [Recovering/Resolving]
  - Off label use [Unknown]

NARRATIVE: CASE EVENT DATE: 20241231
